FAERS Safety Report 14453756 (Version 1)
Quarter: 2018Q1

REPORT INFORMATION
  Report Type: Spontaneous
  Country: US (occurrence: US)
  Receive Date: 20180129
  Receipt Date: 20180129
  Transmission Date: 20180509
  Serious: No
  Sender: FDA-Public Use
  Company Number: US-ENDO PHARMACEUTICALS INC-2017-001001

PATIENT
  Sex: Male

DRUGS (1)
  1. HYDROCODONE BITARTRATE AND ACETAMINOPHEN [Suspect]
     Active Substance: ACETAMINOPHEN\HYDROCODONE BITARTRATE
     Indication: NECK SURGERY
     Dosage: UNK UNK, UNKNOWN
     Route: 048
     Dates: start: 20170217, end: 20170220

REACTIONS (2)
  - Malaise [Unknown]
  - Palpitations [Recovered/Resolved]
